FAERS Safety Report 12913870 (Version 1)
Quarter: 2016Q4

REPORT INFORMATION
  Report Type: Spontaneous
  Country: US (occurrence: US)
  Receive Date: 20161105
  Receipt Date: 20161105
  Transmission Date: 20170207
  Serious: No
  Sender: FDA-Public Use
  Company Number: US-TEVA-700404ACC

PATIENT
  Age: 36 Year
  Sex: Female
  Weight: 63.56 kg

DRUGS (1)
  1. PLAN B ONE-STEP [Suspect]
     Active Substance: LEVONORGESTREL
     Indication: POST COITAL CONTRACEPTION
     Dates: start: 201609, end: 201609

REACTIONS (3)
  - Breast swelling [Not Recovered/Not Resolved]
  - Vaginal haemorrhage [Recovered/Resolved]
  - Breast pain [Not Recovered/Not Resolved]
